FAERS Safety Report 12809401 (Version 1)
Quarter: 2016Q4

REPORT INFORMATION
  Report Type: Spontaneous
  Country: US (occurrence: US)
  Receive Date: 20161005
  Receipt Date: 20161005
  Transmission Date: 20170207
  Serious: No
  Sender: FDA-Public Use
  Company Number: US-BIOGEN-2016BI00279861

PATIENT
  Sex: Female

DRUGS (1)
  1. AVONEX [Suspect]
     Active Substance: INTERFERON BETA-1A
     Indication: MULTIPLE SCLEROSIS
     Route: 065
     Dates: start: 20051231

REACTIONS (6)
  - Tremor [Unknown]
  - Feeling cold [Unknown]
  - Malaise [Recovered/Resolved]
  - General symptom [Unknown]
  - Drug intolerance [Unknown]
  - Nasopharyngitis [Unknown]
